FAERS Safety Report 21962947 (Version 3)
Quarter: 2023Q1

REPORT INFORMATION
  Report Type: Spontaneous
  Country: JP (occurrence: JP)
  Receive Date: 20230207
  Receipt Date: 20230301
  Transmission Date: 20230417
  Serious: Yes (Hospitalization, Other)
  Sender: FDA-Public Use
  Company Number: JP-PFIZER INC-PV202300021442

PATIENT
  Age: 54 Year
  Sex: Female
  Weight: 55.2 kg

DRUGS (2)
  1. DOXORUBICIN HYDROCHLORIDE [Suspect]
     Active Substance: DOXORUBICIN HYDROCHLORIDE
     Indication: Breast cancer
     Dosage: 60 MG/M2, THIRD CYCLIC (91.2 MG)
     Route: 042
  2. CYCLOPHOSPHAMIDE [Suspect]
     Active Substance: CYCLOPHOSPHAMIDE
     Indication: Breast cancer
     Dosage: 600 MG/M2, THIRD CYCLIC (912 MG)
     Route: 042

REACTIONS (2)
  - Diabetic ketoacidosis [Recovering/Resolving]
  - Type 1 diabetes mellitus [Recovering/Resolving]
